FAERS Safety Report 6698464-6 (Version None)
Quarter: 2010Q2

REPORT INFORMATION
  Report Type: 
  Country: None (occurrence: None)
  Receive Date: 20100426
  Receipt Date: 20100426
  Transmission Date: 20101027
  Serious: Yes (Hospitalization)
  Sender: FDA-Public Use
  Company Number: None

PATIENT
  Age: 74 Year
  Sex: Female
  Weight: 93.441 kg

DRUGS (3)
  1. BACTRIM DS [Suspect]
     Indication: URINARY TRACT INFECTION
     Dosage: 1 TAB BID PO LESS THAN 1 WEEK
     Route: 048
  2. EXJADE [Suspect]
     Indication: IRON OVERLOAD
     Dosage: 1 TAB QAM PO
     Route: 048
  3. EXJADE [Suspect]
     Indication: PROPHYLAXIS
     Dosage: 1 TAB QAM PO
     Route: 048

REACTIONS (9)
  - ASTHENIA [None]
  - BLOOD CREATININE INCREASED [None]
  - BLOOD UREA INCREASED [None]
  - DEHYDRATION [None]
  - DRUG INTERACTION [None]
  - FALL [None]
  - HYPOPHAGIA [None]
  - RENAL FAILURE ACUTE [None]
  - URINARY TRACT INFECTION [None]
